FAERS Safety Report 6978593-X (Version None)
Quarter: 2010Q3

REPORT INFORMATION
  Report Type: 
  Country: None (occurrence: None)
  Receive Date: 20100913
  Receipt Date: 20100901
  Transmission Date: 20110219
  Serious: Yes (Hospitalization)
  Sender: FDA-Public Use
  Company Number: JP-JNJFOC-20100701314

PATIENT
  Sex: Female
  Weight: 48 kg

DRUGS (14)
  1. REMICADE [Suspect]
     Indication: CROHN'S DISEASE
     Route: 042
  2. REMICADE [Suspect]
     Route: 042
  3. REMICADE [Suspect]
     Dosage: 4 DOSES ADMINISTERED ON UNKNOWN DATES
     Route: 042
  4. REMICADE [Suspect]
     Dosage: 4 DOSES ADMINISTERED ON UNKNOWN DATES
     Route: 042
  5. REMICADE [Suspect]
     Dosage: 4 DOSES ADMINISTERED ON UNKNOWN DATES
     Route: 042
  6. REMICADE [Suspect]
     Dosage: 4 DOSES ADMINISTERED ON UNKNOWN DATES
     Route: 042
  7. PREDNISOLONE [Concomitant]
     Indication: SYSTEMIC LUPUS ERYTHEMATOSUS
     Route: 048
  8. PLATIBIT [Concomitant]
     Indication: OSTEOPOROSIS
     Route: 048
  9. MUCOSTA [Concomitant]
     Indication: GASTRITIS
     Route: 048
  10. PENTASA [Concomitant]
     Indication: CROHN'S DISEASE
     Route: 048
  11. MIYA BM [Concomitant]
     Indication: CROHN'S DISEASE
     Route: 048
  12. PARIET [Concomitant]
     Indication: REFLUX OESOPHAGITIS
     Route: 048
  13. CHLOR-TRIMETON [Concomitant]
     Indication: PREMEDICATION
  14. SOLU-CORTEF [Concomitant]
     Indication: PREMEDICATION

REACTIONS (2)
  - BACK PAIN [None]
  - INFUSION RELATED REACTION [None]
